FAERS Safety Report 5454936-3 (Version None)
Quarter: 2007Q3

REPORT INFORMATION
  Report Type: 
  Country: None (occurrence: None)
  Receive Date: 20070917
  Receipt Date: 20070905
  Transmission Date: 20080115
  Serious: Yes (Death, Life-Threatening, Hospitalization)
  Sender: FDA-Public Use
  Company Number: PL-PFIZER INC-2006072304

PATIENT
  Sex: Male
  Weight: 60 kg

DRUGS (3)
  1. SU-011,248 [Suspect]
     Indication: RENAL CELL CARCINOMA STAGE UNSPECIFIED
     Route: 048
     Dates: start: 20060523, end: 20060604
  2. KETONAL [Concomitant]
     Route: 048
  3. DURAGESIC-100 [Concomitant]
     Route: 062

REACTIONS (2)
  - MUCOSAL INFLAMMATION [None]
  - RENAL FAILURE [None]
